FAERS Safety Report 14944168 (Version 1)
Quarter: 2018Q2

REPORT INFORMATION
  Report Type: Spontaneous
  Country: DE (occurrence: DE)
  Receive Date: 20180528
  Receipt Date: 20180528
  Transmission Date: 20180711
  Serious: Yes (Other)
  Sender: FDA-Public Use
  Company Number: PHHY2018DE007065

PATIENT
  Age: 1 Day
  Sex: Male
  Weight: 2.61 kg

DRUGS (6)
  1. METOPROLOL. [Suspect]
     Active Substance: METOPROLOL
     Dosage: MATERNAL DOSE: 95 MG, QD
     Route: 064
     Dates: start: 20171217
  2. PROPESS [Concomitant]
     Active Substance: DINOPROSTONE
     Indication: FOETAL EXPOSURE DURING PREGNANCY
     Dosage: MATERNAL DOSE: UNK
     Route: 064
  3. L-THYROXINE [Concomitant]
     Active Substance: LEVOTHYROXINE
     Indication: FOETAL EXPOSURE DURING PREGNANCY
     Dosage: MATERNAL DOSE: 175 UG, QD
     Route: 064
     Dates: start: 20170306
  4. L-THYROXINE [Concomitant]
     Active Substance: LEVOTHYROXINE
     Dosage: MATERNAL DOSE: 175 UG, QD
     Route: 064
     Dates: start: 20171217
  5. FEMIBION [Concomitant]
     Active Substance: VITAMINS
     Indication: FOETAL EXPOSURE DURING PREGNANCY
     Dosage: MATERNAL DOSE: UNK
     Route: 064
  6. METOPROLOL. [Suspect]
     Active Substance: METOPROLOL
     Indication: FOETAL EXPOSURE DURING PREGNANCY
     Dosage: MATERNAL DOSE: 95 MG, QD
     Route: 064
     Dates: start: 20170306

REACTIONS (1)
  - Small for dates baby [Recovering/Resolving]

NARRATIVE: CASE EVENT DATE: 20171217
